FAERS Safety Report 6822471-3 (Version None)
Quarter: 2010Q3

REPORT INFORMATION
  Report Type: 
  Country: None (occurrence: None)
  Receive Date: 20100708
  Receipt Date: 20100625
  Transmission Date: 20110219
  Serious: Yes (Other)
  Sender: FDA-Public Use
  Company Number: DE-CELGENEUS-062-50794-10062815

PATIENT
  Age: 69 Year
  Sex: Male

DRUGS (3)
  1. VIDAZA [Suspect]
     Route: 065
     Dates: start: 20100201, end: 20100601
  2. RED BLOOD CELLS [Concomitant]
     Indication: PRODUCT USED FOR UNKNOWN INDICATION
     Route: 051
  3. PLATELETS, CONCENTRATED [Concomitant]
     Indication: PRODUCT USED FOR UNKNOWN INDICATION
     Route: 065

REACTIONS (2)
  - ACUTE MYELOID LEUKAEMIA [None]
  - DISEASE PROGRESSION [None]
